FAERS Safety Report 8351173-X (Version None)
Quarter: 2012Q2

REPORT INFORMATION
  Report Type: 
  Country: None (occurrence: None)
  Receive Date: 20120510
  Receipt Date: 20120504
  Transmission Date: 20120825
  Serious: No
  Sender: FDA-Public Use
  Company Number: US-PFIZER INC-2012097813

PATIENT
  Sex: Female
  Weight: 59 kg

DRUGS (7)
  1. TENORMIN [Concomitant]
     Indication: HYPERTENSION
     Dosage: UNK
  2. XALATAN [Suspect]
     Indication: GLAUCOMA
     Dosage: UNKNOWN DOSE, ONE DROP IN EACH EYE
     Route: 047
  3. CELEXA [Concomitant]
     Indication: ANXIETY
     Dosage: UNK
  4. LYRICA [Concomitant]
     Indication: NEUROPATHY PERIPHERAL
     Dosage: UNK
  5. XALATAN [Suspect]
     Dosage: ONE DROP IN BOTH EYES , 1X/DAY
     Route: 047
  6. RESTASIS [Concomitant]
     Dosage: UNK
     Route: 047
  7. COSOPT [Concomitant]
     Dosage: UNK
     Route: 047

REACTIONS (4)
  - HYPOAESTHESIA [None]
  - NEUROPATHY PERIPHERAL [None]
  - EYE IRRITATION [None]
  - BLOOD CHOLESTEROL INCREASED [None]
